FAERS Safety Report 6544260-X (Version None)
Quarter: 2010Q1

REPORT INFORMATION
  Report Type: 
  Country: None (occurrence: None)
  Receive Date: 20100119
  Receipt Date: 20100119
  Transmission Date: 20100710
  Serious: No
  Sender: FDA-Public Use
  Company Number: None

PATIENT
  Age: 20 Year
  Sex: Male
  Weight: 90.7194 kg

DRUGS (1)
  1. TYLENOL (CAPLET) [Suspect]
     Indication: PAIN
     Dosage: 2 CAPLETS 4-6 HOURS
     Dates: start: 20100115, end: 20100116

REACTIONS (3)
  - ABDOMINAL PAIN UPPER [None]
  - NAUSEA [None]
  - PRODUCT QUALITY ISSUE [None]
